FAERS Safety Report 21371135 (Version 2)
Quarter: 2022Q4

REPORT INFORMATION
  Report Type: Spontaneous
  Country: JP (occurrence: JP)
  Receive Date: 20220923
  Receipt Date: 20221011
  Transmission Date: 20230112
  Serious: Yes (Death)
  Sender: FDA-Public Use
  Company Number: JP-BAYER-2022A131383

PATIENT
  Sex: Male

DRUGS (2)
  1. XOFIGO [Suspect]
     Active Substance: RADIUM RA-223 DICHLORIDE
     Indication: Hormone-refractory prostate cancer
     Dosage: 55 KBQ/KG ONCE EVERY 4 WEEKS
  2. XOFIGO [Suspect]
     Active Substance: RADIUM RA-223 DICHLORIDE
     Indication: Metastases to bone

REACTIONS (3)
  - Metastases to lymph nodes [Fatal]
  - Metastases to lung [Fatal]
  - Metastases to bone [Fatal]
